FAERS Safety Report 8590838-1 (Version None)
Quarter: 2012Q3

REPORT INFORMATION
  Report Type: 
  Country: None (occurrence: None)
  Receive Date: 20120813
  Receipt Date: 20120806
  Transmission Date: 20120928
  Serious: Yes (Hospitalization, Other)
  Sender: FDA-Public Use
  Company Number: US-ROCHE-802959

PATIENT
  Sex: Female
  Weight: 81.72 kg

DRUGS (3)
  1. ACCUTANE [Suspect]
     Route: 065
     Dates: start: 20000701, end: 20030101
  2. ACCUTANE [Suspect]
     Indication: ACNE
     Route: 065
  3. ACCUTANE [Suspect]
     Route: 065

REACTIONS (13)
  - ANAL FISSURE [None]
  - COLITIS ULCERATIVE [None]
  - EMOTIONAL DISTRESS [None]
  - SMALL INTESTINAL OBSTRUCTION [None]
  - CELLULITIS [None]
  - CHEILITIS [None]
  - OROPHARYNGEAL PAIN [None]
  - CONJUNCTIVITIS ALLERGIC [None]
  - ANAEMIA [None]
  - PERITONSILLAR ABSCESS [None]
  - DEPRESSION [None]
  - OBSESSIVE-COMPULSIVE DISORDER [None]
  - SINUSITIS [None]
